FAERS Safety Report 11643738 (Version 1)
Quarter: 2015Q4

REPORT INFORMATION
  Report Type: Spontaneous
  Country: US (occurrence: None)
  Receive Date: 20151019
  Receipt Date: 20151019
  Transmission Date: 20160304
  Serious: No
  Sender: FDA-Public Use
  Company Number: None

PATIENT
  Age: 45 Year
  Sex: Male
  Weight: 88.45 kg

DRUGS (3)
  1. VITAMIN B COMPLEX [Concomitant]
     Active Substance: CYANOCOBALAMIN\DEXPANTHENOL\NIACINAMIDE\PYRIDOXINE HYDROCHLORIDE\RIBOFLAVIN 5^-PHOSPHATE SODIUM\THIAMINE HYDROCHLORIDE\VITAMIN B COMPLEX
  2. CARVEDIOL [Concomitant]
     Active Substance: CARVEDILOL
  3. METHYLPHENIDATE ER 36 MG KREMERS URBAN [Suspect]
     Active Substance: METHYLPHENIDATE
     Indication: ATTENTION DEFICIT/HYPERACTIVITY DISORDER
     Dosage: 2 PILLS
     Route: 048
     Dates: start: 20151016, end: 20151017

REACTIONS (2)
  - Agitation [None]
  - Anxiety [None]

NARRATIVE: CASE EVENT DATE: 20151017
